FAERS Safety Report 8790667 (Version 1)
Quarter: 2012Q4

REPORT INFORMATION
  Report Type: Spontaneous
  Country: US (occurrence: None)
  Receive Date: 20120904
  Receipt Date: 20120904
  Transmission Date: 20130627
  Serious: Yes (Other)
  Sender: FDA-Public Use
  Company Number: 2012033199

PATIENT
  Age: 19 Year
  Sex: Female

DRUGS (5)
  1. IVIG [Suspect]
     Indication: STATUS EPILEPTICUS
  2. CORTICOSTEROIDS [Suspect]
  3. KETAMINE (KETAMINE) [Concomitant]
  4. PROPOFOL (PROPOFOL) [Concomitant]
  5. PENTOBARBITAL (PENTOBARBITAL) [Concomitant]

REACTIONS (1)
  - Drug ineffective for unapproved indication [None]
